FAERS Safety Report 10221459 (Version 1)
Quarter: 2014Q2

REPORT INFORMATION
  Report Type: Spontaneous
  Country: US (occurrence: None)
  Receive Date: 20140605
  Receipt Date: 20140605
  Transmission Date: 20141212
  Serious: Yes (Other)
  Sender: FDA-Public Use
  Company Number: None

PATIENT
  Age: 0 Day
  Sex: Male
  Weight: 1.2 kg

DRUGS (1)
  1. CARISOPRODOL [Suspect]
     Indication: SPINAL DISORDER
     Dosage: 350 MG, 1 PILL 5 TIMES PER DAY
     Dates: start: 20140507

REACTIONS (3)
  - Blood pressure decreased [None]
  - Vomiting [None]
  - Drug ineffective [None]
